FAERS Safety Report 14572575 (Version 1)
Quarter: 2018Q1

REPORT INFORMATION
  Report Type: Spontaneous
  Country: CZ (occurrence: CZ)
  Receive Date: 20180226
  Receipt Date: 20180226
  Transmission Date: 20180509
  Serious: Yes (Other)
  Sender: FDA-Public Use
  Company Number: CZ-IPSEN BIOPHARMACEUTICALS, INC.-2018-02896

PATIENT
  Age: 4 Year
  Sex: Female

DRUGS (8)
  1. IRINOTECAN LIPOSOME [Suspect]
     Active Substance: IRINOTECAN
     Indication: MEDULLOBLASTOMA RECURRENT
     Dosage: 125 MG/M2
     Route: 065
  2. VINCRISTINE [Suspect]
     Active Substance: VINCRISTINE
     Indication: MEDULLOBLASTOMA RECURRENT
     Dosage: 1.5 MG/M2
  3. CALCIUM LEUCOVORIN [Suspect]
     Active Substance: LEUCOVORIN CALCIUM
     Indication: PRODUCT USED FOR UNKNOWN INDICATION
  4. METHOTREXATE. [Suspect]
     Active Substance: METHOTREXATE
     Indication: MEDULLOBLASTOMA RECURRENT
  5. IRINOTECAN LIPOSOME [Suspect]
     Active Substance: IRINOTECAN
     Indication: OFF LABEL USE
  6. BEVACIZUMAB. [Suspect]
     Active Substance: BEVACIZUMAB
     Indication: MEDULLOBLASTOMA RECURRENT
     Dosage: 10 MG/KG
  7. LIPOSOMAL CYTARABINE [Suspect]
     Active Substance: CYTARABINE
     Indication: MEDULLOBLASTOMA RECURRENT
     Dosage: 2 MG/KG
     Route: 037
  8. DOXORUBICIN [Suspect]
     Active Substance: DOXORUBICIN
     Indication: MEDULLOBLASTOMA RECURRENT
     Dosage: 70 MG/M2

REACTIONS (4)
  - Pancytopenia [Unknown]
  - Off label use [Unknown]
  - Overdose [Unknown]
  - Infection [Unknown]
